FAERS Safety Report 13945557 (Version 1)
Quarter: 2017Q3

REPORT INFORMATION
  Report Type: Spontaneous
  Country: BR (occurrence: BR)
  Receive Date: 20170907
  Receipt Date: 20170907
  Transmission Date: 20171128
  Serious: Yes (Other)
  Sender: FDA-Public Use
  Company Number: BR-PFIZER INC-2017382244

PATIENT
  Age: 76 Year
  Sex: Female

DRUGS (1)
  1. XALATAN [Suspect]
     Active Substance: LATANOPROST
     Indication: GLAUCOMA
     Dosage: 2 GTT, 1X/DAY(ONE DROP EACH EYE, AT NIGHT)
     Dates: start: 2009

REACTIONS (5)
  - Visual impairment [Unknown]
  - Macular oedema [Unknown]
  - Upper limb fracture [Unknown]
  - Retinal disorder [Unknown]
  - Fall [Unknown]

NARRATIVE: CASE EVENT DATE: 201706
